FAERS Safety Report 15793954 (Version 1)
Quarter: 2019Q1

REPORT INFORMATION
  Report Type: Spontaneous
  Country: CN (occurrence: CN)
  Receive Date: 20190107
  Receipt Date: 20190107
  Transmission Date: 20190417
  Serious: Yes (Other)
  Sender: FDA-Public Use
  Company Number: CN-PFIZER INC-2019000888

PATIENT
  Age: 45 Year
  Sex: Male
  Weight: 65 kg

DRUGS (1)
  1. DIFLUCAN [Suspect]
     Active Substance: FLUCONAZOLE
     Indication: CRYPTOCOCCOSIS
     Dosage: 0.15 G, 1X/DAY
     Route: 048
     Dates: start: 20180801

REACTIONS (3)
  - Mental disorder [Recovering/Resolving]
  - Agitation [Recovering/Resolving]
  - Aggression [Recovering/Resolving]

NARRATIVE: CASE EVENT DATE: 20180807
